FAERS Safety Report 7416499-2 (Version None)
Quarter: 2011Q2

REPORT INFORMATION
  Report Type: 
  Country: None (occurrence: None)
  Receive Date: 20110414
  Receipt Date: 20110412
  Transmission Date: 20111010
  Serious: Yes (Hospitalization, Other)
  Sender: FDA-Public Use
  Company Number: HR-ABBOTT-11P-216-0717170-00

PATIENT
  Sex: Male

DRUGS (2)
  1. SEVOFLURANE [Suspect]
     Indication: URETHRAL MEATOTOMY
     Dosage: SHORT INHALATORY ANESTHESIA
  2. VOLTAREN [Concomitant]
     Indication: PAIN PROPHYLAXIS
     Dosage: 1 AMPOULE GIVEN ONCE

REACTIONS (2)
  - RENAL FAILURE [None]
  - BLOOD CREATININE INCREASED [None]
